FAERS Safety Report 20605056 (Version 2)
Quarter: 2022Q1

REPORT INFORMATION
  Report Type: Spontaneous
  Country: MX (occurrence: MX)
  Receive Date: 20220317
  Receipt Date: 20220331
  Transmission Date: 20220423
  Serious: Yes (Other)
  Sender: FDA-Public Use
  Company Number: MX-TEVA-2022-MX-2016713

PATIENT
  Age: 42 Year
  Sex: Female

DRUGS (2)
  1. DOCETAXEL [Suspect]
     Active Substance: DOCETAXEL
     Indication: Pleomorphic leiomyosarcoma
     Dosage: EVERY 3 WEEKS, ON DAY 1, RECEIVED TOTAL 4 CYCLES.
     Route: 065
     Dates: start: 202006, end: 202008
  2. GEMCITABINE [Suspect]
     Active Substance: GEMCITABINE
     Indication: Pleomorphic leiomyosarcoma
     Dosage: ON DAYS 1 AND 8 , RECEIVED TOTAL 4 CYCLES.
     Route: 065
     Dates: start: 202006, end: 202008

REACTIONS (1)
  - Cytopenia [Unknown]

NARRATIVE: CASE EVENT DATE: 20200101
